FAERS Safety Report 5810657-6 (Version None)
Quarter: 2008Q3

REPORT INFORMATION
  Report Type: 
  Country: None (occurrence: None)
  Receive Date: 20080715
  Receipt Date: 20080711
  Transmission Date: 20090109
  Serious: Yes (Hospitalization)
  Sender: FDA-Public Use
  Company Number: GB-BOEHRINGER INGELHEIM GMBH, GERMANY-2008-BP-10826RO

PATIENT
  Age: 69 Year
  Sex: Male

DRUGS (8)
  1. CLARITHROMYCIN [Suspect]
     Indication: MYCOBACTERIUM AVIUM COMPLEX INFECTION
  2. RIFAMPICIN [Suspect]
     Indication: MYCOBACTERIUM AVIUM COMPLEX INFECTION
  3. ETHAMBUTOL HYDROCHLORIDE [Suspect]
     Indication: MYCOBACTERIUM AVIUM COMPLEX INFECTION
  4. CLOPIDOGREL [Suspect]
     Indication: ACUTE MYOCARDIAL INFARCTION
  5. CLOPIDOGREL [Suspect]
     Indication: THROMBOSIS IN DEVICE
  6. ASPIRIN [Suspect]
     Indication: ACUTE MYOCARDIAL INFARCTION
  7. ASPIRIN [Suspect]
     Indication: THROMBOSIS IN DEVICE
  8. ABCIXIMAB [Suspect]
     Indication: ACUTE MYOCARDIAL INFARCTION

REACTIONS (4)
  - ACUTE MYOCARDIAL INFARCTION [None]
  - DRUG INTERACTION [None]
  - MULTIPLE-DRUG RESISTANCE [None]
  - THROMBOSIS IN DEVICE [None]
